FAERS Safety Report 22519083 (Version 1)
Quarter: 2023Q2

REPORT INFORMATION
  Report Type: Spontaneous
  Country: US (occurrence: US)
  Receive Date: 20230605
  Receipt Date: 20230605
  Transmission Date: 20230721
  Serious: Yes (Death)
  Sender: FDA-Public Use
  Company Number: US-STRIDES ARCOLAB LIMITED-2023SP008605

PATIENT
  Age: 49 Year
  Sex: Female

DRUGS (5)
  1. ETOPOSIDE [Suspect]
     Active Substance: ETOPOSIDE
     Indication: Rectal cancer metastatic
     Dosage: UNK
     Route: 065
  2. ETOPOSIDE [Suspect]
     Active Substance: ETOPOSIDE
     Indication: Small cell carcinoma
  3. CARBOPLATIN [Suspect]
     Active Substance: CARBOPLATIN
     Indication: Rectal cancer metastatic
     Dosage: UNK
     Route: 065
  4. CARBOPLATIN [Suspect]
     Active Substance: CARBOPLATIN
     Indication: Small cell carcinoma
  5. URSODIOL [Concomitant]
     Active Substance: URSODIOL
     Indication: Primary biliary cholangitis
     Dosage: UNK
     Route: 065

REACTIONS (2)
  - Death [Fatal]
  - Off label use [Unknown]
